FAERS Safety Report 4503605-2 (Version None)
Quarter: 2004Q4

REPORT INFORMATION
  Report Type: 
  Country: None (occurrence: None)
  Receive Date: 20041117
  Receipt Date: 20041105
  Transmission Date: 20050328
  Serious: Yes (Hospitalization)
  Sender: FDA-Public Use
  Company Number: PHRM2004FR03313

PATIENT
  Age: 92 Year
  Sex: Female

DRUGS (2)
  1. BRIEM [Suspect]
     Indication: HYPERTENSION
     Dosage: 10 MG/DAY
     Route: 048
     Dates: start: 20030410, end: 20040910
  2. BRIAZIDE [Suspect]
     Indication: HYPERTENSION
     Dosage: 1 DF, QD
     Route: 048
     Dates: start: 20030410, end: 20040910

REACTIONS (6)
  - ANGIONEUROTIC OEDEMA [None]
  - DIARRHOEA [None]
  - EYELID OEDEMA [None]
  - GASTROINTESTINAL DISORDER [None]
  - LARYNGEAL OEDEMA [None]
  - MALAISE [None]
